FAERS Safety Report 4691809-8 (Version None)
Quarter: 2005Q2

REPORT INFORMATION
  Report Type: 
  Country: None (occurrence: None)
  Receive Date: 20050616
  Receipt Date: 20050607
  Transmission Date: 20051028
  Serious: Yes (Other)
  Sender: FDA-Public Use
  Company Number: US-JNJFOC-20050602531

PATIENT
  Sex: Male

DRUGS (4)
  1. DURAGESIC-100 [Suspect]
     Route: 062
     Dates: start: 20050301, end: 20050528
  2. DURAGESIC-100 [Suspect]
     Route: 062
     Dates: start: 20050301, end: 20050528
  3. PROZAC [Concomitant]
     Indication: PANIC ATTACK
  4. XANAX [Concomitant]
     Indication: PANIC ATTACK
     Dosage: ONE ADDITIONAL, AS NEEDED, FOR PANIC ATTACK

REACTIONS (3)
  - GAZE PALSY [None]
  - PHARMACEUTICAL PRODUCT COMPLAINT [None]
  - RESPIRATORY ARREST [None]
